FAERS Safety Report 12997784 (Version 1)
Quarter: 2016Q4

REPORT INFORMATION
  Report Type: Spontaneous
  Country: US (occurrence: US)
  Receive Date: 20161205
  Receipt Date: 20161205
  Transmission Date: 20170207
  Serious: Yes (Other)
  Sender: FDA-Public Use
  Company Number: PHEH2016US031177

PATIENT
  Age: 56 Year
  Sex: Female

DRUGS (2)
  1. JADENU [Suspect]
     Active Substance: DEFERASIROX
     Indication: SICKLE CELL ANAEMIA
     Route: 048
  2. HYDROXYUREA. [Concomitant]
     Active Substance: HYDROXYUREA
     Indication: SICKLE CELL ANAEMIA
     Route: 065

REACTIONS (4)
  - Decreased appetite [Unknown]
  - Cerebrovascular accident [Recovering/Resolving]
  - Dysgeusia [Unknown]
  - Diarrhoea [Unknown]
